FAERS Safety Report 8848595 (Version 1)
Quarter: 2012Q4

REPORT INFORMATION
  Report Type: 
  Country: US (occurrence: US)
  Receive Date: 20121018
  Receipt Date: 20121018
  Transmission Date: 20130627
  Serious: Yes (Other)
  Sender: FDA-Public Use
  Company Number: US-ROCHE-1141957

PATIENT
  Sex: Male

DRUGS (1)
  1. NUTROPIN AQ [Suspect]
     Indication: DWARFISM
     Route: 058
     Dates: start: 19960328

REACTIONS (4)
  - Tachycardia [Unknown]
  - Adenoiditis [Unknown]
  - Abdominal pain [Unknown]
  - Enuresis [Unknown]
